FAERS Safety Report 7068716-9 (Version None)
Quarter: 2010Q4

REPORT INFORMATION
  Report Type: 
  Country: None (occurrence: None)
  Receive Date: 20101028
  Receipt Date: 20101018
  Transmission Date: 20110411
  Serious: Yes (Hospitalization, Other)
  Sender: FDA-Public Use
  Company Number: US-PFIZER INC-2010099739

PATIENT
  Sex: Female

DRUGS (5)
  1. CHANTIX [Suspect]
     Indication: SMOKING CESSATION THERAPY
     Dosage: UNK
     Dates: start: 20070901, end: 20091101
  2. VICODIN [Concomitant]
     Indication: PAIN
     Dosage: UNK
     Dates: start: 20020601, end: 20090401
  3. CLONAZEPAM [Concomitant]
     Indication: ANXIETY
     Dosage: UNK
     Dates: start: 20060401
  4. EFFEXOR XR [Concomitant]
     Indication: ANXIETY
     Dosage: UNK
     Dates: start: 20060401, end: 20080501
  5. EFFEXOR XR [Concomitant]
     Indication: DEPRESSION

REACTIONS (8)
  - AGORAPHOBIA [None]
  - ANXIETY [None]
  - BIPOLAR II DISORDER [None]
  - INTENTIONAL OVERDOSE [None]
  - MAJOR DEPRESSION [None]
  - MENTAL DISORDER [None]
  - PANIC DISORDER [None]
  - SUICIDE ATTEMPT [None]
